FAERS Safety Report 12633902 (Version 2)
Quarter: 2016Q3

REPORT INFORMATION
  Report Type: Report from Study
  Country: US (occurrence: US)
  Receive Date: 20160808
  Receipt Date: 20160902
  Transmission Date: 20161109
  Serious: No
  Sender: FDA-Public Use
  Company Number: US-AMGEN-USASL2016099669

PATIENT
  Age: 50 Year
  Sex: Female

DRUGS (1)
  1. ENBREL [Suspect]
     Active Substance: ETANERCEPT
     Indication: RHEUMATOID ARTHRITIS
     Dosage: UNK UNK, QWK
     Route: 065

REACTIONS (8)
  - Injection site rash [Recovered/Resolved]
  - Injection site warmth [Unknown]
  - Injection site pruritus [Unknown]
  - Injection site reaction [Unknown]
  - Injection site pain [Unknown]
  - Injection site swelling [Recovered/Resolved]
  - Injection site induration [Unknown]
  - Injection site discolouration [Not Recovered/Not Resolved]
